FAERS Safety Report 22104079 (Version 2)
Quarter: 2023Q1

REPORT INFORMATION
  Report Type: Spontaneous
  Country: US (occurrence: US)
  Receive Date: 20230316
  Receipt Date: 20230330
  Transmission Date: 20230418
  Serious: Yes (Hospitalization)
  Sender: FDA-Public Use
  Company Number: JO-TEVA-2023-US-2866007

PATIENT
  Age: 65 Year
  Sex: Male

DRUGS (3)
  1. CARBAMAZEPINE [Suspect]
     Active Substance: CARBAMAZEPINE
     Indication: Focal dyscognitive seizures
     Dosage: 800 MILLIGRAM DAILY; 800MG RECEIVED IN THE MORNING
     Route: 065
  2. CARBAMAZEPINE [Suspect]
     Active Substance: CARBAMAZEPINE
     Dosage: 600 MILLIGRAM DAILY; 600MG RECEIVED IN THE EVENING
     Route: 065
  3. PHENOBARBITAL [Concomitant]
     Active Substance: PHENOBARBITAL
     Indication: Focal dyscognitive seizures
     Dosage: 129.6 MILLIGRAM DAILY; 64.8MG TWICE DAILY
     Route: 065

REACTIONS (4)
  - Hyperammonaemia [Unknown]
  - Toxic encephalopathy [Unknown]
  - Asterixis [Recovered/Resolved]
  - Toxicity to various agents [Recovered/Resolved]
